FAERS Safety Report 13023830 (Version 1)
Quarter: 2016Q4

REPORT INFORMATION
  Report Type: Spontaneous
  Country: IT (occurrence: IT)
  Receive Date: 20161213
  Receipt Date: 20161213
  Transmission Date: 20170207
  Serious: Yes (Other)
  Sender: FDA-Public Use
  Company Number: IT-TEVA-719196ACC

PATIENT
  Age: 64 Year
  Sex: Female

DRUGS (4)
  1. FLUOROURACIL. [Suspect]
     Active Substance: FLUOROURACIL
     Route: 065
     Dates: start: 201305
  2. FOLINIC ACID [Suspect]
     Active Substance: LEUCOVORIN
     Indication: PRODUCT USED FOR UNKNOWN INDICATION
     Route: 065
  3. AFLIBERCEPT [Suspect]
     Active Substance: AFLIBERCEPT
     Indication: CHEMOTHERAPY
     Dates: start: 201305
  4. IRINOTECAN [Suspect]
     Active Substance: IRINOTECAN
     Route: 065
     Dates: start: 201305

REACTIONS (10)
  - Diarrhoea [Unknown]
  - Stomatitis [Unknown]
  - Periodontal disease [Unknown]
  - Purulent discharge [Unknown]
  - Periodontitis [Unknown]
  - Osteonecrosis of jaw [Unknown]
  - Neutropenia [Unknown]
  - Condition aggravated [Unknown]
  - Tooth avulsion [Unknown]
  - Deep vein thrombosis [Unknown]
